FAERS Safety Report 5968840-5 (Version None)
Quarter: 2008Q4

REPORT INFORMATION
  Report Type: 
  Country: None (occurrence: None)
  Receive Date: 20081126
  Receipt Date: 20081114
  Transmission Date: 20090506
  Serious: Yes (Hospitalization, Other)
  Sender: FDA-Public Use
  Company Number: US-ELI_LILLY_AND_COMPANY-US200811003735

PATIENT
  Age: 55 Year
  Sex: Male
  Weight: 105.67 kg

DRUGS (5)
  1. BYETTA [Suspect]
     Dosage: 10 UG, UNK
     Dates: start: 20060101, end: 20081101
  2. BYETTA [Suspect]
     Dosage: 10 MG, UNK
     Dates: start: 20081101
  3. GLYBURIDE [Concomitant]
  4. AVANDAMET [Concomitant]
  5. LISINOPRIL [Concomitant]

REACTIONS (7)
  - BLOOD GLUCOSE DECREASED [None]
  - BLOOD LACTIC ACID INCREASED [None]
  - BLOOD PH DECREASED [None]
  - BLOOD TRIGLYCERIDES INCREASED [None]
  - PANCREATITIS [None]
  - RENAL FAILURE [None]
  - WEIGHT DECREASED [None]
